FAERS Safety Report 10113107 (Version 2)
Quarter: 2015Q1

REPORT INFORMATION
  Report Type: Other
  Country: US (occurrence: US)
  Receive Date: 20140425
  Receipt Date: 20150128
  Transmission Date: 20150720
  Serious: Yes (Hospitalization, Other)
  Sender: FDA-Public Use
  Company Number: US-GSKPPD-2014GSK014310

PATIENT
  Age: 85 Year
  Sex: Female

DRUGS (4)
  1. ALTACE [Concomitant]
     Active Substance: RAMIPRIL
  2. COREG [Concomitant]
     Active Substance: CARVEDILOL
  3. COUMADIN [Concomitant]
     Active Substance: WARFARIN SODIUM
  4. AVANDIA [Suspect]
     Active Substance: ROSIGLITAZONE MALEATE
     Indication: DIABETES MELLITUS
     Dosage: AVANDIA WAS NOT LISTED AMONG THE PATIENTS RECORDS REVIEWED.
     Route: 048

REACTIONS (1)
  - Atrial fibrillation [Recovered/Resolved]

NARRATIVE: CASE EVENT DATE: 20060126
